FAERS Safety Report 6223101-4 (Version None)
Quarter: 2009Q2

REPORT INFORMATION
  Report Type: 
  Country: None (occurrence: None)
  Receive Date: 20090611
  Receipt Date: 20090609
  Transmission Date: 20091009
  Serious: Yes (Hospitalization)
  Sender: FDA-Public Use
  Company Number: US-BRISTOL-MYERS SQUIBB COMPANY-14640643

PATIENT
  Age: 62 Year
  Sex: Female
  Weight: 83 kg

DRUGS (3)
  1. ERBITUX [Suspect]
     Indication: CERVIX CARCINOMA
     Dosage: INITIAL DOSE 400MG/M2-30MAR09
     Dates: start: 20090504, end: 20090504
  2. CISPLATIN [Suspect]
     Indication: CERVIX CARCINOMA
     Dosage: INITIAL DOSE-30MG/M2-30MAR09
     Dates: start: 20090504, end: 20090504
  3. RADIATION THERAPY [Suspect]
     Indication: CERVIX CARCINOMA
     Dosage: 1DF-4500CGY NO OF FRACTIONS-25,ELASPSED DAYS-1 INITIAL DOSE-30MAR09
     Dates: start: 20090514, end: 20090514

REACTIONS (3)
  - HEADACHE [None]
  - NECK PAIN [None]
  - PLATELET COUNT DECREASED [None]
